FAERS Safety Report 16768406 (Version 15)
Quarter: 2020Q3

REPORT INFORMATION
  Report Type: Spontaneous
  Country: US (occurrence: US)
  Receive Date: 20190903
  Receipt Date: 20200702
  Transmission Date: 20201102
  Serious: Yes (Other)
  Sender: FDA-Public Use
  Company Number: US-PFIZER INC-2019372856

PATIENT
  Age: 71 Year
  Sex: Male
  Weight: 93 kg

DRUGS (9)
  1. FLECTOR [Suspect]
     Active Substance: DICLOFENAC EPOLAMINE
     Indication: INFLAMMATION
     Dosage: 1 PATCH, 1X/DAY
     Route: 061
  2. CELEBREX [Concomitant]
     Active Substance: CELECOXIB
     Indication: INFLAMMATION
     Dosage: 100 MG, UNK
  3. FLECTOR [Suspect]
     Active Substance: DICLOFENAC EPOLAMINE
     Indication: PAIN
     Dosage: 1 PATCH, 1X/DAY
     Route: 061
     Dates: start: 201909
  4. CELEBREX [Concomitant]
     Active Substance: CELECOXIB
     Dosage: 200 MG, UNK
     Dates: end: 2019
  5. FLECTOR [Suspect]
     Active Substance: DICLOFENAC EPOLAMINE
     Indication: NEUROPATHY PERIPHERAL
  6. METHOCARBAMOL. [Concomitant]
     Active Substance: METHOCARBAMOL
     Indication: PAIN
     Dosage: 750 MG, 4X/DAY
  7. METHOCARBAMOL. [Concomitant]
     Active Substance: METHOCARBAMOL
     Indication: MUSCLE RELAXANT THERAPY
  8. ACETAMINOPHEN;OXYCODONE HYDROCHLORIDE [Concomitant]
     Active Substance: ACETAMINOPHEN\OXYCODONE HYDROCHLORIDE
     Indication: PAIN
     Dosage: UNK
  9. OXYCODONE [Concomitant]
     Active Substance: OXYCODONE
     Indication: PAIN
     Dosage: 10?325 MG, 4X/DAY
     Route: 048

REACTIONS (18)
  - Head injury [Not Recovered/Not Resolved]
  - Hypotension [Unknown]
  - Pain in extremity [Not Recovered/Not Resolved]
  - Confusional state [Recovering/Resolving]
  - Fall [Recovered/Resolved]
  - Loss of personal independence in daily activities [Unknown]
  - Limb injury [Not Recovered/Not Resolved]
  - Headache [Not Recovered/Not Resolved]
  - Chest injury [Not Recovered/Not Resolved]
  - Neuropathy peripheral [Not Recovered/Not Resolved]
  - Accident [Unknown]
  - Agitation [Unknown]
  - Craniocerebral injury [Recovering/Resolving]
  - Pain [Not Recovered/Not Resolved]
  - Neck injury [Not Recovered/Not Resolved]
  - Neck pain [Not Recovered/Not Resolved]
  - Condition aggravated [Not Recovered/Not Resolved]
  - Back injury [Not Recovered/Not Resolved]

NARRATIVE: CASE EVENT DATE: 20181122
